FAERS Safety Report 9409133 (Version 2)
Quarter: 2013Q3

REPORT INFORMATION
  Report Type: Spontaneous
  Country: DE (occurrence: DE)
  Receive Date: 20130719
  Receipt Date: 20130814
  Transmission Date: 20140515
  Serious: Yes (Life-Threatening, Hospitalization)
  Sender: FDA-Public Use
  Company Number: DE-JNJFOC-20130708997

PATIENT
  Age: 29 Year
  Sex: Female
  Weight: 118 kg

DRUGS (2)
  1. REMICADE [Suspect]
     Indication: COLITIS ULCERATIVE
     Dosage: 5 MG/KG
     Route: 042
     Dates: start: 20130328, end: 20130523
  2. AZATHIOPRIN [Suspect]
     Indication: COLITIS ULCERATIVE
     Dosage: DOSE:2.5 MG/KG
     Route: 065
     Dates: start: 20130328, end: 20130523

REACTIONS (6)
  - Pancytopenia [Recovering/Resolving]
  - Agranulocytosis [Recovering/Resolving]
  - Aplasia [Recovering/Resolving]
  - Haemorrhage [Recovering/Resolving]
  - Subcutaneous abscess [Recovering/Resolving]
  - Urticaria [Recovered/Resolved]
